FAERS Safety Report 25750632 (Version 1)
Quarter: 2025Q3

REPORT INFORMATION
  Report Type: Spontaneous
  Country: EU (occurrence: EU)
  Receive Date: 20250902
  Receipt Date: 20250902
  Transmission Date: 20251021
  Serious: Yes (Hospitalization, Other)
  Sender: SANDOZ
  Company Number: EU-TEVA-2018-SK-848678

PATIENT
  Age: 56 Year
  Sex: Female

DRUGS (15)
  1. CISPLATIN [Suspect]
     Active Substance: CISPLATIN
     Indication: Lung adenocarcinoma
     Route: 065
  2. CISPLATIN [Suspect]
     Active Substance: CISPLATIN
     Route: 065
  3. CRIZOTINIB [Suspect]
     Active Substance: CRIZOTINIB
     Indication: Lung adenocarcinoma
     Route: 065
     Dates: start: 201510
  4. DOCETAXEL [Suspect]
     Active Substance: DOCETAXEL
     Indication: Adenocarcinoma
     Route: 065
     Dates: start: 201412, end: 201412
  5. DOCETAXEL [Suspect]
     Active Substance: DOCETAXEL
     Indication: Lung adenocarcinoma
     Route: 065
     Dates: start: 201507, end: 201507
  6. DOCETAXEL [Suspect]
     Active Substance: DOCETAXEL
     Route: 065
  7. NINTEDANIB [Suspect]
     Active Substance: NINTEDANIB
     Indication: Lung adenocarcinoma
     Dosage: 100 MG 2 TABLETS 2 TIMES A DAY, , (CYCLICAL))
     Route: 048
     Dates: start: 201412, end: 201507
  8. NINTEDANIB [Suspect]
     Active Substance: NINTEDANIB
     Dosage: 200 MG, BID
     Route: 065
     Dates: start: 201412
  9. NINTEDANIB [Suspect]
     Active Substance: NINTEDANIB
     Dosage: 200 MG, BID
     Route: 065
     Dates: start: 201507
  10. NINTEDANIB [Suspect]
     Active Substance: NINTEDANIB
     Indication: Adenocarcinoma
     Dosage: 400 MG, QD
     Route: 048
     Dates: end: 201507
  11. PEMETREXED [Suspect]
     Active Substance: PEMETREXED
     Indication: Lung adenocarcinoma
     Route: 065
  12. PEMETREXED [Suspect]
     Active Substance: PEMETREXED
     Route: 065
  13. VINORELBINE [Suspect]
     Active Substance: VINORELBINE TARTRATE
     Indication: Lung adenocarcinoma
     Route: 065
  14. CARBOPLATIN [Concomitant]
     Active Substance: CARBOPLATIN
     Indication: Lung adenocarcinoma
     Route: 065
     Dates: start: 201507
  15. GEMCITABINE [Concomitant]
     Active Substance: GEMCITABINE
     Indication: Lung adenocarcinoma
     Route: 065
     Dates: start: 201507

REACTIONS (12)
  - Hepatotoxicity [Recovered/Resolved]
  - Liver disorder [Recovered/Resolved]
  - Hypothyroidism [Recovering/Resolving]
  - Ocular discomfort [Recovering/Resolving]
  - Angina pectoris [Unknown]
  - Hepatic enzyme increased [Recovered/Resolved]
  - Mucosal inflammation [Unknown]
  - Oedema peripheral [Recovering/Resolving]
  - Oesophagitis [Unknown]
  - Febrile neutropenia [Unknown]
  - Disease progression [Unknown]
  - Transaminases increased [Recovered/Resolved]

NARRATIVE: CASE EVENT DATE: 20140101
